FAERS Safety Report 7457985-9 (Version None)
Quarter: 2011Q1

REPORT INFORMATION
  Report Type: 
  Country: None (occurrence: None)
  Receive Date: 20110302
  Receipt Date: 20101026
  Transmission Date: 20110831
  Serious: Yes (Hospitalization, Other)
  Sender: FDA-Public Use
  Company Number: 163-21880-10090399

PATIENT
  Age: 23 Year
  Sex: Female

DRUGS (2)
  1. REVLIMID [Suspect]
     Indication: MULTIPLE MYELOMA
     Dosage: 10 MG, DAILY AS DIRECTED, PO
     Route: 048
     Dates: start: 20100501, end: 20100801
  2. ASPIRIN [Concomitant]

REACTIONS (2)
  - THROMBOCYTOPENIA [None]
  - RECTAL PROLAPSE [None]
